FAERS Safety Report 11367178 (Version 1)
Quarter: 2015Q3

REPORT INFORMATION
  Report Type: Spontaneous
  Country: US (occurrence: US)
  Receive Date: 20150811
  Receipt Date: 20150811
  Transmission Date: 20151125
  Serious: No
  Sender: FDA-Public Use
  Company Number: US-ELI_LILLY_AND_COMPANY-US201109006307

PATIENT
  Sex: Male

DRUGS (4)
  1. AXIRON [Suspect]
     Active Substance: TESTOSTERONE
     Indication: BLOOD TESTOSTERONE DECREASED
     Dosage: 60 MG, QD
     Dates: start: 20110827
  2. AXIRON [Suspect]
     Active Substance: TESTOSTERONE
     Dosage: 30 MG, QD
  3. AXIRON [Suspect]
     Active Substance: TESTOSTERONE
     Dosage: 60 MG, EVERY OTHER DAY
  4. AXIRON [Suspect]
     Active Substance: TESTOSTERONE
     Dosage: 60 MG, QD

REACTIONS (3)
  - Muscle spasms [Recovered/Resolved]
  - Ear pain [Unknown]
  - Incorrect dose administered [Unknown]
